FAERS Safety Report 4505006-X (Version None)
Quarter: 2004Q4

REPORT INFORMATION
  Report Type: 
  Country: None (occurrence: None)
  Receive Date: 20041116
  Receipt Date: 20041103
  Transmission Date: 20050328
  Serious: Yes (Other)
  Sender: FDA-Public Use
  Company Number: 2004243856BR

PATIENT
  Age: 30 Year
  Sex: Female

DRUGS (2)
  1. DEPO-PROVERA [Suspect]
     Indication: MENSTRUAL DISCOMFORT
     Dosage: 150 MG/MONTHLY, LAST INJECTION, INTRAMUSCULAR
     Route: 030
     Dates: start: 20040808, end: 20040808
  2. DEPO-PROVERA [Suspect]
     Indication: MENSTRUAL DISCOMFORT
     Dosage: 150 MG/MONTHLY, LAST INJECTION, INTRAMUSCULAR
     Route: 030
     Dates: start: 20041008, end: 20041008

REACTIONS (5)
  - ASTHENIA [None]
  - DIZZINESS [None]
  - MALAISE [None]
  - VAGINITIS [None]
  - WEIGHT DECREASED [None]
